FAERS Safety Report 7783901-6 (Version None)
Quarter: 2011Q3

REPORT INFORMATION
  Report Type: 
  Country: None (occurrence: None)
  Receive Date: 20110928
  Receipt Date: 20110916
  Transmission Date: 20111222
  Serious: Yes (Hospitalization)
  Sender: FDA-Public Use
  Company Number: JP-GLAXOSMITHKLINE-B0734393A

PATIENT
  Sex: Female

DRUGS (6)
  1. LENDORMIN [Concomitant]
     Indication: INSOMNIA
     Dosage: .25MG PER DAY
     Route: 048
     Dates: start: 20080331, end: 20080412
  2. PAXIL [Suspect]
     Indication: DEPRESSIVE SYMPTOM
     Dosage: 20MG PER DAY
     Route: 048
     Dates: start: 20080331, end: 20080412
  3. LUVOX [Concomitant]
     Indication: DEPRESSIVE SYMPTOM
     Dosage: 150MG PER DAY
     Route: 048
     Dates: start: 20080229, end: 20080412
  4. MOTILIUM [Concomitant]
     Indication: NAUSEA
     Dosage: 20MG PER DAY
     Route: 048
     Dates: start: 20080314, end: 20080412
  5. STROCAIN [Concomitant]
     Indication: NAUSEA
     Dosage: 10MG PER DAY
     Route: 048
     Dates: start: 20080314, end: 20080412
  6. DEPAS [Concomitant]
     Indication: DEPRESSIVE SYMPTOM
     Dosage: 3MG PER DAY
     Route: 048
     Dates: start: 20080331, end: 20080412

REACTIONS (4)
  - ASPARTATE AMINOTRANSFERASE INCREASED [None]
  - LIVER DISORDER [None]
  - ALANINE AMINOTRANSFERASE INCREASED [None]
  - MALAISE [None]
